FAERS Safety Report 21577503 (Version 2)
Quarter: 2022Q4

REPORT INFORMATION
  Report Type: Spontaneous
  Country: US (occurrence: US)
  Receive Date: 20221110
  Receipt Date: 20221128
  Transmission Date: 20230113
  Serious: No
  Sender: FDA-Public Use
  Company Number: US-GSK-US2022AMR156940

PATIENT
  Sex: Female

DRUGS (3)
  1. BENLYSTA [Suspect]
     Active Substance: BELIMUMAB
     Indication: Systemic lupus erythematosus
     Dosage: 200 MG/ML, WE
     Route: 058
  2. BENLYSTA [Suspect]
     Active Substance: BELIMUMAB
     Indication: Multifocal fibrosclerosis
  3. BENLYSTA [Suspect]
     Active Substance: BELIMUMAB
     Indication: Rheumatoid arthritis

REACTIONS (7)
  - Pyrexia [Unknown]
  - Headache [Unknown]
  - Influenza like illness [Unknown]
  - Pharyngeal inflammation [Unknown]
  - Dizziness [Unknown]
  - Adverse drug reaction [Unknown]
  - Product use in unapproved indication [Unknown]
